FAERS Safety Report 25159690 (Version 2)
Quarter: 2025Q2

REPORT INFORMATION
  Report Type: Spontaneous
  Country: BG (occurrence: BG)
  Receive Date: 20250404
  Receipt Date: 20250430
  Transmission Date: 20250716
  Serious: Yes (Other)
  Sender: RANBAXY
  Company Number: BG-SUN PHARMACEUTICAL INDUSTRIES LTD-2025R1-501694

PATIENT
  Age: 64 Year
  Sex: Female

DRUGS (5)
  1. ACITRETIN [Suspect]
     Active Substance: ACITRETIN
     Indication: Lichen planopilaris
     Route: 065
  2. BILASTINE [Suspect]
     Active Substance: BILASTINE
     Indication: Lichen planopilaris
     Route: 065
  3. PREDNISOLONE [Suspect]
     Active Substance: PREDNISOLONE
     Indication: Lichen planopilaris
     Route: 061
  4. METHYLPREDNISOLONE [Suspect]
     Active Substance: METHYLPREDNISOLONE
     Indication: Lichen planopilaris
     Dosage: UNK UNK, QD
     Route: 065
  5. BETAMETHASONE\SALICYLIC ACID [Suspect]
     Active Substance: BETAMETHASONE\SALICYLIC ACID
     Indication: Skin lesion
     Dosage: UNK UNK, QD
     Route: 065

REACTIONS (1)
  - Condition aggravated [Unknown]
